FAERS Safety Report 6970449-1 (Version None)
Quarter: 2010Q3

REPORT INFORMATION
  Report Type: 
  Country: None (occurrence: None)
  Receive Date: 20100908
  Receipt Date: 20100827
  Transmission Date: 20110219
  Serious: Yes (Hospitalization, Other)
  Sender: FDA-Public Use
  Company Number: US-ELI_LILLY_AND_COMPANY-US201007004842

PATIENT
  Sex: Male
  Weight: 58.05 kg

DRUGS (6)
  1. PEMETREXED [Suspect]
     Indication: NON-SMALL CELL LUNG CANCER
     Dosage: 860 MG, OTHER
     Route: 042
     Dates: start: 20100525
  2. CARBOPLATIN [Suspect]
     Indication: NON-SMALL CELL LUNG CANCER
     Dosage: 575 MG, OTHER
     Route: 042
     Dates: start: 20100525
  3. FOLIC ACID [Concomitant]
     Dosage: 1 MG, DAILY (1/D)
     Dates: start: 20100514
  4. VITAMIN B-12 [Concomitant]
     Dosage: 1000 UG, OTHER
     Dates: start: 20100518
  5. K-TAB [Concomitant]
     Dosage: 10 MEQ, UNK
     Dates: start: 20100708
  6. ZOFRAN [Concomitant]
     Dosage: 8 MG, 3/D
     Dates: start: 20100514

REACTIONS (4)
  - DEHYDRATION [None]
  - NEUTROPHIL COUNT DECREASED [None]
  - PLATELET COUNT DECREASED [None]
  - WHITE BLOOD CELL COUNT DECREASED [None]
